FAERS Safety Report 4966287-1 (Version None)
Quarter: 2006Q2

REPORT INFORMATION
  Report Type: 
  Country: None (occurrence: None)
  Receive Date: 20060407
  Receipt Date: 20051117
  Transmission Date: 20061013
  Serious: Yes (Hospitalization, Other)
  Sender: FDA-Public Use
  Company Number: US-MERCK-0511USA03134

PATIENT
  Age: 54 Year
  Sex: Female
  Weight: 55 kg

DRUGS (12)
  1. VIOXX [Suspect]
     Indication: OSTEOARTHRITIS
     Route: 048
     Dates: start: 19991201, end: 20031101
  2. VIOXX [Suspect]
     Indication: LUMBAR RADICULOPATHY
     Route: 048
     Dates: start: 19991201, end: 20031101
  3. MONOPRIL [Concomitant]
     Indication: HYPERTENSION
     Route: 065
     Dates: start: 20010701, end: 20031026
  4. MAXZIDE [Concomitant]
     Indication: HYPERTENSION
     Route: 065
     Dates: start: 20010801, end: 20030101
  5. TOPROL-XL [Concomitant]
     Route: 065
  6. KLONOPIN [Concomitant]
     Indication: ANXIETY
     Route: 065
     Dates: start: 19960101
  7. FLEXERIL [Concomitant]
     Indication: MUSCLE SPASMS
     Route: 065
  8. SYNTHROID [Concomitant]
     Route: 065
  9. PAXIL [Concomitant]
     Indication: DEPRESSION
     Route: 065
     Dates: start: 19940101
  10. IMITREX [Concomitant]
     Route: 065
     Dates: start: 19960101
  11. AMBIEN [Concomitant]
     Route: 065
  12. HORMONES (UNSPECIFIED) [Concomitant]
     Indication: HORMONE REPLACEMENT THERAPY
     Route: 065
     Dates: start: 19820101

REACTIONS (5)
  - ARACHNOIDITIS [None]
  - CEREBROVASCULAR ACCIDENT [None]
  - GASTROOESOPHAGEAL REFLUX DISEASE [None]
  - INTERVERTEBRAL DISC PROTRUSION [None]
  - TRANSIENT ISCHAEMIC ATTACK [None]
